FAERS Safety Report 8344670-4 (Version None)
Quarter: 2012Q2

REPORT INFORMATION
  Report Type: 
  Country: None (occurrence: None)
  Receive Date: 20120508
  Receipt Date: 20120430
  Transmission Date: 20120825
  Serious: Yes (Other)
  Sender: FDA-Public Use
  Company Number: US-JNJFOC-20120408840

PATIENT

DRUGS (4)
  1. BORTEZOMIB [Suspect]
     Indication: MULTIPLE MYELOMA
     Route: 042
  2. LENALIDOMIDE [Suspect]
     Indication: MULTIPLE MYELOMA
     Route: 048
  3. DOXORUBICIN HCL [Suspect]
     Indication: MULTIPLE MYELOMA
     Dosage: MAXIMUM RESPONSE+ 2 ADDITIONAL CYCLES OR MAXIMUM OF 8 CYCLES OF THERAPY WITHOUT DISEASE PROGRESSION
     Route: 042
  4. DEXAMETHASONE [Suspect]
     Indication: MULTIPLE MYELOMA
     Route: 042

REACTIONS (7)
  - NEUROPATHY PERIPHERAL [None]
  - NEUTROPENIA [None]
  - PNEUMONIA [None]
  - ANAEMIA [None]
  - ADVERSE EVENT [None]
  - THROMBOCYTOPENIA [None]
  - MULTIPLE MYELOMA [None]
